FAERS Safety Report 6060441-6 (Version None)
Quarter: 2009Q1

REPORT INFORMATION
  Report Type: 
  Country: None (occurrence: None)
  Receive Date: 20090129
  Receipt Date: 20090113
  Transmission Date: 20090719
  Serious: Yes (Hospitalization)
  Sender: FDA-Public Use
  Company Number: 8041166

PATIENT
  Sex: Male
  Weight: 110 kg

DRUGS (14)
  1. KEPPRA [Suspect]
     Dosage: 500 MG 2/D PO
     Route: 048
  2. ALBUTEROL [Concomitant]
  3. TYLENOL [Concomitant]
  4. ROXICET [Concomitant]
  5. ZANTAC [Concomitant]
  6. MUCINEX [Concomitant]
  7. FLAGYL [Concomitant]
  8. REMERON [Concomitant]
  9. LASIX [Concomitant]
  10. LANTUS [Concomitant]
  11. SUDAFED 12 HOUR [Concomitant]
  12. PERIDEX [Concomitant]
  13. POTASSIUM CHLORIDE [Concomitant]
  14. BACLOFEN [Concomitant]

REACTIONS (1)
  - INAPPROPRIATE ANTIDIURETIC HORMONE SECRETION [None]
